FAERS Safety Report 12964464 (Version 1)
Quarter: 2016Q4

REPORT INFORMATION
  Report Type: Report from Study
  Country: US (occurrence: US)
  Receive Date: 20161122
  Receipt Date: 20161122
  Transmission Date: 20170207
  Serious: No
  Sender: FDA-Public Use
  Company Number: US-AMGEN-USASL2016149266

PATIENT
  Age: 10 Year
  Sex: Female
  Weight: 69.84 kg

DRUGS (5)
  1. ENBREL [Suspect]
     Active Substance: ETANERCEPT
     Indication: PSORIATIC ARTHROPATHY
  2. METHOTREXATE. [Concomitant]
     Active Substance: METHOTREXATE
     Dosage: UNK
  3. CELEBREX [Concomitant]
     Active Substance: CELECOXIB
     Indication: PAIN
     Dosage: UNK
  4. ENBREL [Suspect]
     Active Substance: ETANERCEPT
     Indication: JUVENILE IDIOPATHIC ARTHRITIS
     Dosage: 50 MG, QWK
     Route: 065
     Dates: start: 201604, end: 201610
  5. ENBREL [Suspect]
     Active Substance: ETANERCEPT
     Indication: RHEUMATOID ARTHRITIS
     Dosage: 50 MG, QWK
     Route: 065
     Dates: start: 201610

REACTIONS (11)
  - Weight abnormal [Unknown]
  - Injection site bruising [Recovered/Resolved]
  - Nervousness [Unknown]
  - Injection site haemorrhage [Recovered/Resolved]
  - Drug effect incomplete [Unknown]
  - Injection site pruritus [Recovered/Resolved]
  - Injection site extravasation [Unknown]
  - Injection site erythema [Recovered/Resolved]
  - Off label use [Unknown]
  - Headache [Unknown]
  - Panic reaction [Unknown]

NARRATIVE: CASE EVENT DATE: 2016
